FAERS Safety Report 7570048-7 (Version None)
Quarter: 2011Q2

REPORT INFORMATION
  Report Type: 
  Country: None (occurrence: None)
  Receive Date: 20110624
  Receipt Date: 20110602
  Transmission Date: 20111010
  Serious: No
  Sender: FDA-Public Use
  Company Number: US-B.I. PHARMACEUTICALS,INC./RIDGEFIELD-2011-BP-07395BP

PATIENT
  Age: 75 Year
  Sex: Male
  Weight: 68.49 kg

DRUGS (9)
  1. VYTORIN [Concomitant]
  2. PRADAXA [Suspect]
     Indication: ATRIAL FIBRILLATION
     Dosage: 150 MG
     Route: 048
     Dates: start: 20110209, end: 20110308
  3. NISOLDIPINE ER [Concomitant]
     Dosage: 25.5 MG
     Route: 048
  4. SOTALOL HCL [Concomitant]
     Indication: ATRIAL FIBRILLATION
     Dosage: 160 MG
     Route: 048
  5. SIMVASTATIN [Concomitant]
     Dosage: 20 MG
     Route: 048
  6. PRADAXA [Suspect]
     Indication: CEREBROVASCULAR ACCIDENT PROPHYLAXIS
  7. PRADAXA [Suspect]
     Indication: INTERNATIONAL NORMALISED RATIO
  8. ALLOPURINOL [Concomitant]
  9. HYDROCODONE [Concomitant]

REACTIONS (5)
  - RENAL PAIN [None]
  - HAEMATURIA [None]
  - DIZZINESS [None]
  - DYSURIA [None]
  - DYSPEPSIA [None]
